FAERS Safety Report 9169896 (Version 1)
Quarter: 2013Q1

REPORT INFORMATION
  Report Type: Spontaneous
  Country: US (occurrence: None)
  Receive Date: 20130307
  Receipt Date: 20130307
  Transmission Date: 20140127
  Serious: Yes (Hospitalization, Other)
  Sender: FDA-Public Use
  Company Number: 2013P1002846

PATIENT
  Age: 60 Year
  Sex: Male

DRUGS (7)
  1. LIDOCAINE [Suspect]
     Indication: ECHOCARDIOGRAM
     Route: 048
  2. METOPROLOL XL [Suspect]
  3. WARFARIN [Concomitant]
  4. LISINOPRIL [Concomitant]
  5. DOCUSATE SODIUM [Concomitant]
  6. CHLORIDE [Concomitant]
  7. FUROSEMIDE [Concomitant]

REACTIONS (6)
  - Toxicity to various agents [None]
  - Ataxia [None]
  - Diplopia [None]
  - Atrial fibrillation [None]
  - Local swelling [None]
  - Drug clearance decreased [None]
